FAERS Safety Report 24696835 (Version 1)
Quarter: 2024Q4

REPORT INFORMATION
  Report Type: Spontaneous
  Country: CN (occurrence: CN)
  Receive Date: 20241204
  Receipt Date: 20241204
  Transmission Date: 20250115
  Serious: Yes (Other)
  Sender: GLAND PHARMA LTD
  Company Number: CN-GLANDPHARMA-CN-2024GLNLIT01111

PATIENT
  Age: 48 Year
  Sex: Female

DRUGS (18)
  1. CISPLATIN [Suspect]
     Active Substance: CISPLATIN
     Indication: T-cell lymphoma
     Route: 041
  2. CISPLATIN [Suspect]
     Active Substance: CISPLATIN
     Indication: T-cell lymphoma
  3. DEXAMETHASONE SODIUM PHOSPHATE [Suspect]
     Active Substance: DEXAMETHASONE SODIUM PHOSPHATE
     Indication: T-cell lymphoma
     Dosage: DRIP, D1-12
     Route: 041
  4. DEXAMETHASONE SODIUM PHOSPHATE [Suspect]
     Active Substance: DEXAMETHASONE SODIUM PHOSPHATE
     Indication: T-cell lymphoma
  5. RUXOLITINIB PHOSPHATE [Suspect]
     Active Substance: RUXOLITINIB PHOSPHATE
     Indication: T-cell lymphoma
     Dosage: D1-28
     Route: 048
  6. RUXOLITINIB PHOSPHATE [Suspect]
     Active Substance: RUXOLITINIB PHOSPHATE
     Indication: T-cell lymphoma
  7. ETOPOSIDE [Suspect]
     Active Substance: ETOPOSIDE
     Indication: T-cell lymphoma
     Route: 041
  8. ETOPOSIDE [Suspect]
     Active Substance: ETOPOSIDE
     Indication: T-cell lymphoma
  9. GEMCITABINE [Suspect]
     Active Substance: GEMCITABINE
     Indication: T-cell lymphoma
     Route: 041
  10. GEMCITABINE [Suspect]
     Active Substance: GEMCITABINE
     Indication: T-cell lymphoma
  11. PEGASPARGASE [Suspect]
     Active Substance: PEGASPARGASE
     Indication: T-cell lymphoma
     Dosage: 2500 IU PER METER SQUARE, MAXIMUM DOSE 3750IU PER METER SQUARE
     Route: 030
  12. PEGASPARGASE [Suspect]
     Active Substance: PEGASPARGASE
     Indication: T-cell lymphoma
  13. METHOTREXATE [Suspect]
     Active Substance: METHOTREXATE
     Indication: T-cell lymphoma
     Dosage: SMILE
     Route: 065
  14. METHOTREXATE [Suspect]
     Active Substance: METHOTREXATE
     Indication: T-cell lymphoma
  15. ASPARAGINASE [Suspect]
     Active Substance: ASPARAGINASE
     Indication: T-cell lymphoma
     Dosage: SMILE REGIMEN
     Route: 065
  16. ASPARAGINASE [Suspect]
     Active Substance: ASPARAGINASE
     Indication: T-cell lymphoma
  17. IFOSFAMIDE [Suspect]
     Active Substance: IFOSFAMIDE
     Indication: T-cell lymphoma
     Dosage: SMILE THERAPY
     Route: 065
  18. IFOSFAMIDE [Suspect]
     Active Substance: IFOSFAMIDE
     Indication: T-cell lymphoma

REACTIONS (3)
  - Hepatic failure [Unknown]
  - Thrombocytopenia [Unknown]
  - Product use in unapproved indication [Unknown]
